FAERS Safety Report 21801840 (Version 2)
Quarter: 2023Q1

REPORT INFORMATION
  Report Type: Spontaneous
  Country: US (occurrence: US)
  Receive Date: 20221230
  Receipt Date: 20230306
  Transmission Date: 20230417
  Serious: No
  Sender: FDA-Public Use
  Company Number: US-GILEAD-2022-0611262

PATIENT

DRUGS (1)
  1. DESCOVY [Suspect]
     Active Substance: EMTRICITABINE\TENOFOVIR ALAFENAMIDE FUMARATE
     Indication: HIV infection
     Dosage: 1 DF 200/25 MG PART OF A 3 DRUG DAILY COCTAIL
     Route: 065

REACTIONS (3)
  - Product blister packaging issue [Not Recovered/Not Resolved]
  - Product package associated injury [Unknown]
  - Product packaging difficult to open [Not Recovered/Not Resolved]
